FAERS Safety Report 6748920-7 (Version None)
Quarter: 2010Q2

REPORT INFORMATION
  Report Type: 
  Country: None (occurrence: None)
  Receive Date: 20100601
  Receipt Date: 20100519
  Transmission Date: 20101027
  Serious: Yes (Other)
  Sender: FDA-Public Use
  Company Number: US-BAYER-201014075NA

PATIENT
  Age: 21 Year
  Sex: Female
  Weight: 62 kg

DRUGS (3)
  1. YAZ [Suspect]
     Indication: DRUG USE FOR UNKNOWN INDICATION
     Route: 048
  2. YASMIN [Suspect]
     Indication: DRUG USE FOR UNKNOWN INDICATION
     Route: 048
  3. UNKNOWN DRUGS [Concomitant]

REACTIONS (3)
  - CHOLECYSTECTOMY [None]
  - HYPERKALAEMIA [None]
  - RENAL DISORDER [None]
